FAERS Safety Report 14741411 (Version 12)
Quarter: 2021Q4

REPORT INFORMATION
  Report Type: Spontaneous
  Country: US (occurrence: US)
  Receive Date: 20180410
  Receipt Date: 20211014
  Transmission Date: 20220303
  Serious: Yes (Other)
  Sender: FDA-Public Use
  Company Number: US-GLAXOSMITHKLINE-US2018GSK060868

PATIENT
  Sex: Female

DRUGS (6)
  1. PREVACID [Suspect]
     Active Substance: LANSOPRAZOLE
     Indication: Product used for unknown indication
     Dosage: UNK
     Route: 065
  2. PREVACID [Suspect]
     Active Substance: LANSOPRAZOLE
     Indication: Product used for unknown indication
     Dosage: UNK
     Route: 065
  3. OMEPRAZOLE [Suspect]
     Active Substance: OMEPRAZOLE
     Indication: Gastrooesophageal reflux disease
     Dosage: 20 MG, BID
     Route: 048
  4. PANTOPRAZOLE [Suspect]
     Active Substance: PANTOPRAZOLE
     Indication: Gastrooesophageal reflux disease
     Dosage: 40 MG, QD
     Route: 048
  5. PANTOPRAZOLE [Suspect]
     Active Substance: PANTOPRAZOLE
     Indication: Gastrooesophageal reflux disease
  6. PANTOPRAZOLE [Suspect]
     Active Substance: PANTOPRAZOLE
     Indication: Oesophagitis

REACTIONS (17)
  - Chronic kidney disease [Unknown]
  - Renal failure [Unknown]
  - Diabetic nephropathy [Unknown]
  - End stage renal disease [Unknown]
  - Renal transplant [Unknown]
  - Renal atrophy [Unknown]
  - Nephrolithiasis [Unknown]
  - Pyelonephritis acute [Unknown]
  - Nephropathy [Unknown]
  - Nephrogenic anaemia [Unknown]
  - Glomerular filtration rate decreased [Unknown]
  - Urinary hesitation [Unknown]
  - Dysuria [Unknown]
  - Chromaturia [Unknown]
  - Urinary incontinence [Unknown]
  - Pollakiuria [Unknown]
  - Cystitis [Unknown]
